FAERS Safety Report 7335061-3 (Version None)
Quarter: 2011Q1

REPORT INFORMATION
  Report Type: 
  Country: None (occurrence: None)
  Receive Date: 20110307
  Receipt Date: 20110301
  Transmission Date: 20110831
  Serious: Yes (Hospitalization)
  Sender: FDA-Public Use
  Company Number: FR-ROCHE-763514

PATIENT
  Age: 70 Year
  Sex: Female

DRUGS (1)
  1. ROACTEMRA [Suspect]
     Dosage: FORM:INFUSION
     Route: 042

REACTIONS (1)
  - HAEMORRHAGIC STROKE [None]
